FAERS Safety Report 7700663-9 (Version None)
Quarter: 2011Q3

REPORT INFORMATION
  Report Type: 
  Country: None (occurrence: None)
  Receive Date: 20110822
  Receipt Date: 20110822
  Transmission Date: 20111222
  Serious: No
  Sender: FDA-Public Use
  Company Number: None

PATIENT
  Age: 61 Year
  Sex: Female
  Weight: 62.595 kg

DRUGS (3)
  1. BACLOFEN [Suspect]
     Indication: GASTROOESOPHAGEAL REFLUX DISEASE
     Dosage: 5 MG
     Route: 048
     Dates: start: 20110820, end: 20110820
  2. BACLOFEN [Suspect]
     Indication: GASTROOESOPHAGEAL SPHINCTER INSUFFICIENCY
     Dosage: 5 MG
     Route: 048
     Dates: start: 20110820, end: 20110820
  3. BACLOFEN [Suspect]
     Indication: HIATUS HERNIA
     Dosage: 5 MG
     Route: 048
     Dates: start: 20110820, end: 20110820

REACTIONS (13)
  - HEART RATE DECREASED [None]
  - VISION BLURRED [None]
  - DIZZINESS [None]
  - SPEECH DISORDER [None]
  - DEPRESSED LEVEL OF CONSCIOUSNESS [None]
  - FEELING ABNORMAL [None]
  - SOMNOLENCE [None]
  - MUSCULAR WEAKNESS [None]
  - DYSGRAPHIA [None]
  - MOVEMENT DISORDER [None]
  - DEPRESSION [None]
  - THINKING ABNORMAL [None]
  - HEADACHE [None]
